FAERS Safety Report 9206697 (Version 4)
Quarter: 2014Q4

REPORT INFORMATION
  Report Type: Spontaneous
  Country: US (occurrence: US)
  Receive Date: 20130403
  Receipt Date: 20141010
  Transmission Date: 20150529
  Serious: Yes (Hospitalization)
  Sender: FDA-Public Use
  Company Number: US-009507513-1304USA000377

PATIENT
  Sex: Male
  Weight: 106.58 kg

DRUGS (2)
  1. PROSCAR [Suspect]
     Active Substance: FINASTERIDE
     Indication: ANDROGENETIC ALOPECIA
     Dosage: 5 MG, UNK
     Route: 048
  2. PROPECIA [Suspect]
     Active Substance: FINASTERIDE
     Indication: ANDROGENETIC ALOPECIA
     Dosage: 1 MG, QD
     Route: 048
     Dates: start: 20060705, end: 20090506

REACTIONS (43)
  - Cough [Unknown]
  - Abdominal pain [Unknown]
  - Skin papilloma [Unknown]
  - Diastasis recti abdominis [Unknown]
  - Major depression [Unknown]
  - Pulmonary arterial hypertension [Unknown]
  - Off label use [Unknown]
  - Lower gastrointestinal haemorrhage [Unknown]
  - Hyperkeratosis [Unknown]
  - Dental caries [Unknown]
  - Varicocele [Unknown]
  - Pancreatic atrophy [Unknown]
  - Depression [Not Recovered/Not Resolved]
  - Joint injection [Unknown]
  - Haemorrhoids [Unknown]
  - Hypertension [Unknown]
  - Insomnia [Unknown]
  - Benign prostatic hyperplasia [Unknown]
  - Loss of libido [Unknown]
  - Erectile dysfunction [Unknown]
  - Sinus bradycardia [Unknown]
  - Arteriosclerosis [Unknown]
  - Nocturia [Unknown]
  - Anxiety [Not Recovered/Not Resolved]
  - Gout [Unknown]
  - Pleural calcification [Unknown]
  - Diverticulitis [Unknown]
  - Acne [Unknown]
  - Dyspnoea [Unknown]
  - Atelectasis [Unknown]
  - Pleural fibrosis [Unknown]
  - Cognitive disorder [Not Recovered/Not Resolved]
  - Rosacea [Unknown]
  - Herpes simplex [Unknown]
  - Atrial fibrillation [Unknown]
  - Varicose vein [Unknown]
  - Renal cyst [Unknown]
  - Cardiomegaly [Unknown]
  - Hepatitis A [Unknown]
  - Sleep apnoea syndrome [Unknown]
  - Hydrocele [Unknown]
  - Meniscus injury [Unknown]
  - Osteoarthritis [Unknown]

NARRATIVE: CASE EVENT DATE: 2007
